FAERS Safety Report 20578709 (Version 1)
Quarter: 2022Q1

REPORT INFORMATION
  Report Type: Spontaneous
  Country: US (occurrence: None)
  Receive Date: 20220310
  Receipt Date: 20220310
  Transmission Date: 20220423
  Serious: Yes (Hospitalization)
  Sender: FDA-Public Use
  Company Number: None

PATIENT
  Age: 82 Year
  Sex: Male
  Weight: 82 kg

DRUGS (1)
  1. HEPARIN [Suspect]
     Active Substance: HEPARIN SODIUM
     Indication: Acute myocardial infarction
     Dates: start: 20220309, end: 20220310

REACTIONS (4)
  - Mental status changes [None]
  - Respiratory disorder [None]
  - Subarachnoid haemorrhage [None]
  - Cerebral infarction [None]

NARRATIVE: CASE EVENT DATE: 20220310
